FAERS Safety Report 8129630 (Version 2)
Quarter: 2012Q4

REPORT INFORMATION
  Report Type: 
  Country: US (occurrence: US)
  Receive Date: 20110909
  Receipt Date: 20121127
  Transmission Date: 20130627
  Serious: Yes (Hospitalization, Other)
  Sender: FDA-Public Use
  Company Number: US-ELI_LILLY_AND_COMPANY-US201108009269

PATIENT
  Sex: Female

DRUGS (6)
  1. CYMBALTA [Suspect]
     Indication: ANXIETY
     Dosage: 120 mg, qd
     Dates: start: 2004, end: 201205
  2. CYMBALTA [Suspect]
     Dosage: 30 mg, unknown
  3. CYMBALTA [Suspect]
     Dosage: 60 mg, unknown
  4. XANAX                                   /USA/ [Concomitant]
     Dosage: 0.5 mg, bid
  5. CELEBREX [Concomitant]
  6. LISINOPRIL                              /USA/ [Concomitant]

REACTIONS (9)
  - Tendon injury [Unknown]
  - Ligament injury [Unknown]
  - Accident [Unknown]
  - Hip arthroplasty [Unknown]
  - Intentional self-injury [Unknown]
  - Bipolar disorder [Unknown]
  - Fibromyalgia [Unknown]
  - Post-traumatic stress disorder [Unknown]
  - Osteoarthritis [Unknown]
